FAERS Safety Report 22100757 (Version 2)
Quarter: 2023Q1

REPORT INFORMATION
  Report Type: Spontaneous
  Country: NL (occurrence: NL)
  Receive Date: 20230316
  Receipt Date: 20230325
  Transmission Date: 20230417
  Serious: Yes (Hospitalization)
  Sender: FDA-Public Use
  Company Number: NL-LRB-00870143

PATIENT
  Sex: Female
  Weight: 55 kg

DRUGS (1)
  1. AMOXICILLIN [Suspect]
     Active Substance: AMOXICILLIN
     Indication: Tonsillitis streptococcal
     Dosage: 750 MILLIGRAM, 3 TIMES A DAY ( 750MG EVERY 8 HOURS FOR 10 DAYS)
     Route: 065
     Dates: start: 20220115, end: 20220116

REACTIONS (6)
  - Jarisch-Herxheimer reaction [Recovered/Resolved]
  - Rash erythematous [Recovered/Resolved]
  - Rash [Recovered/Resolved]
  - Pyrexia [Unknown]
  - Myalgia [Unknown]
  - Rash maculo-papular [Recovered/Resolved]
